FAERS Safety Report 20172820 (Version 1)
Quarter: 2021Q4

REPORT INFORMATION
  Report Type: Spontaneous
  Country: FR (occurrence: FR)
  Receive Date: 20211211
  Receipt Date: 20211211
  Transmission Date: 20220303
  Serious: Yes (Hospitalization)
  Sender: FDA-Public Use
  Company Number: None

PATIENT
  Age: 19 Year
  Sex: Male

DRUGS (3)
  1. SILDENAFIL [Suspect]
     Active Substance: SILDENAFIL
     Dosage: 1 TABLET
     Route: 048
     Dates: start: 20211014, end: 20211014
  2. COCAINE [Suspect]
     Active Substance: COCAINE
     Dosage: INCREASED FOR 1 MONTH?ROUTE OF ADMINISTRATION: UNKNOWN.
     Route: 065
     Dates: start: 2021
  3. CANNABIS SATIVA SUBSP. INDICA TOP [Suspect]
     Active Substance: CANNABIS SATIVA SUBSP. INDICA TOP
     Dosage: OCCASIONAL
     Dates: start: 2021

REACTIONS (2)
  - Myocarditis [Recovering/Resolving]
  - Chest pain [Recovered/Resolved]

NARRATIVE: CASE EVENT DATE: 20211017
